FAERS Safety Report 8928808 (Version 1)
Quarter: 2012Q4

REPORT INFORMATION
  Report Type: Spontaneous
  Country: US (occurrence: None)
  Receive Date: 20121126
  Receipt Date: 20121126
  Transmission Date: 20130627
  Serious: Yes (Hospitalization)
  Sender: FDA-Public Use
  Company Number: None

PATIENT
  Age: 55 Year
  Sex: Male
  Weight: 81.65 kg

DRUGS (1)
  1. NEXIUM [Suspect]

REACTIONS (9)
  - Dizziness [None]
  - Feeling hot [None]
  - Heart rate increased [None]
  - Abdominal pain upper [None]
  - Feeling abnormal [None]
  - Blood pressure increased [None]
  - Skin discolouration [None]
  - Ocular hyperaemia [None]
  - Tremor [None]
